FAERS Safety Report 14611918 (Version 2)
Quarter: 2018Q1

REPORT INFORMATION
  Report Type: Report from Study
  Country: None (occurrence: BE)
  Receive Date: 20180308
  Receipt Date: 20180322
  Transmission Date: 20180509
  Serious: Yes (Hospitalization, Other)
  Sender: FDA-Public Use
  Company Number: BE-ABBVIE-18K-013-2277886-00

PATIENT
  Age: 69 Year
  Sex: Male

DRUGS (4)
  1. DUODOPA [Suspect]
     Active Substance: CARBIDOPA\LEVODOPA
     Indication: PARKINSON^S DISEASE
     Route: 050
     Dates: start: 20080303, end: 20080304
  2. DUODOPA [Suspect]
     Active Substance: CARBIDOPA\LEVODOPA
     Dosage: MD=3ML??CD=2.3ML/HR DURING 16HRS ??ED=1.5ML
     Route: 050
     Dates: start: 20170519
  3. DUODOPA [Suspect]
     Active Substance: CARBIDOPA\LEVODOPA
     Dosage: MD=17ML??CD=5.5ML/HR DURING 16HRS ??ED=6ML
     Route: 050
     Dates: start: 20080304, end: 20120417
  4. DUODOPA [Suspect]
     Active Substance: CARBIDOPA\LEVODOPA
     Dosage: DOSES CONTINUOUSLY MONITORED AND ADAPTED
     Route: 050
     Dates: start: 20120417, end: 20170519

REACTIONS (3)
  - General physical health deterioration [Unknown]
  - Pneumonia [Unknown]
  - Device alarm issue [Recovered/Resolved]

NARRATIVE: CASE EVENT DATE: 20180303
